FAERS Safety Report 20951286 (Version 1)
Quarter: 2022Q2

REPORT INFORMATION
  Report Type: Spontaneous
  Country: US (occurrence: None)
  Receive Date: 20220610
  Receipt Date: 20220610
  Transmission Date: 20220721
  Serious: No
  Sender: FDA-Public Use
  Company Number: None

PATIENT
  Sex: Female

DRUGS (2)
  1. DAYTIME COLD AND COUGH AND NIGHTTIME COLD AND CONGESTION CHILDRENS [Suspect]
     Active Substance: BROMPHENIRAMINE MALEATE\DEXTROMETHORPHAN HYDROBROMIDE\DIPHENHYDRAMINE HYDROCHLORIDE\PHENYLEPHRINE HY
     Indication: Cough
     Route: 048
     Dates: start: 20220608, end: 20220609
  2. DAYTIME COLD AND COUGH AND NIGHTTIME COLD AND CONGESTION CHILDRENS [Suspect]
     Active Substance: BROMPHENIRAMINE MALEATE\DEXTROMETHORPHAN HYDROBROMIDE\DIPHENHYDRAMINE HYDROCHLORIDE\PHENYLEPHRINE HY
     Indication: Nasopharyngitis

REACTIONS (3)
  - Product label issue [None]
  - Product packaging confusion [None]
  - Product label confusion [None]

NARRATIVE: CASE EVENT DATE: 20220609
